FAERS Safety Report 20796227 (Version 1)
Quarter: 2022Q2

REPORT INFORMATION
  Report Type: Spontaneous
  Country: JP (occurrence: JP)
  Receive Date: 20220506
  Receipt Date: 20220506
  Transmission Date: 20220721
  Serious: Yes (Other)
  Sender: FDA-Public Use
  Company Number: JP-ABBVIE-22K-087-4383961-00

PATIENT

DRUGS (2)
  1. HUMIRA [Suspect]
     Active Substance: ADALIMUMAB
     Indication: Product used for unknown indication
     Route: 058
  2. METHOTREXATE [Suspect]
     Active Substance: METHOTREXATE
     Indication: Product used for unknown indication
     Route: 065

REACTIONS (23)
  - Interstitial lung disease [Unknown]
  - Neoplasm malignant [Unknown]
  - Alopecia [Unknown]
  - Psoriasis [Unknown]
  - Gastrointestinal disorder [Recovered/Resolved]
  - Liver disorder [Unknown]
  - Renal disorder [Unknown]
  - Feeling abnormal [Unknown]
  - Stomatitis [Unknown]
  - Full blood count decreased [Unknown]
  - Gastrointestinal disorder [Unknown]
  - White blood cell count decreased [Unknown]
  - Drug ineffective [Unknown]
  - Diarrhoea [Unknown]
  - Rheumatoid arthritis [Unknown]
  - Hyperhidrosis [Unknown]
  - Therapeutic product effect decreased [Unknown]
  - Lung disorder [Unknown]
  - Pneumocystis jirovecii pneumonia [Unknown]
  - Rash [Unknown]
  - Infection [Unknown]
  - Hypersensitivity [Unknown]
  - Cognitive disorder [Unknown]
